FAERS Safety Report 7828664-0 (Version None)
Quarter: 2011Q4

REPORT INFORMATION
  Report Type: 
  Country: None (occurrence: None)
  Receive Date: 20111020
  Receipt Date: 20111010
  Transmission Date: 20120403
  Serious: Yes (Hospitalization, Other)
  Sender: FDA-Public Use
  Company Number: US-CELGENEUS-163-21660-11090876

PATIENT
  Sex: Male
  Weight: 65.9 kg

DRUGS (38)
  1. 0.9% NS [Concomitant]
     Dosage: 1000 MILLILITER
     Route: 041
     Dates: start: 20110903, end: 20110903
  2. BENADRYL [Concomitant]
     Indication: PREMEDICATION
     Dosage: 50 MILLIGRAM
     Route: 041
     Dates: start: 20110627, end: 20110809
  3. CALCIUM GLUCONATE [Concomitant]
     Dosage: 2 GRAM
     Route: 041
     Dates: start: 20110906, end: 20110906
  4. POTASSIUM CHLORIDE [Concomitant]
     Dosage: 20-40MEQ
     Route: 048
     Dates: start: 20110903, end: 20110904
  5. CISPLATIN [Suspect]
     Dosage: 20 MILLIGRAM/SQ. METER
     Route: 065
     Dates: start: 20110705, end: 20110809
  6. ACTIQ [Concomitant]
     Indication: PAIN
     Dosage: 200 MICROGRAM
     Dates: start: 20110718
  7. ASTEPRO [Concomitant]
     Indication: SEASONAL ALLERGY
     Dosage: 205.5 MICROGRAM
     Route: 045
  8. QUALAQUIN [Concomitant]
     Dosage: 324 MILLIGRAM
     Route: 048
  9. 0.9% NS [Concomitant]
     Dosage: 1000 MILLILITER
     Route: 041
     Dates: start: 20110815, end: 20110823
  10. MORPHINE SULFATE [Concomitant]
     Indication: PAIN
     Dosage: 4 MILLIGRAM
     Route: 041
     Dates: start: 20110815, end: 20110815
  11. REGULAR INSULIN [Concomitant]
     Dosage: SLIDING SCALE
     Route: 058
     Dates: start: 20110905
  12. POTASSIUM CHLORIDE [Concomitant]
     Dosage: 40 MILLIEQUIVALENTS
     Route: 041
     Dates: start: 20110815, end: 20110823
  13. METOPROLOL TARTRATE [Concomitant]
     Indication: HYPERTENSION
     Dosage: 50 MILLIGRAM
     Route: 048
  14. DOMEBORO [Concomitant]
     Indication: DERMATITIS
     Dosage: ONE APP
     Route: 061
     Dates: start: 20110810, end: 20110903
  15. POTASSIUM PHOSPHATES [Concomitant]
     Dosage: 3 GRAM
     Route: 041
     Dates: start: 20110907, end: 20110907
  16. VERAMYST [Concomitant]
     Indication: SEASONAL ALLERGY
     Dosage: 2 SPRAYS
     Route: 045
  17. MAGNESIUM SULFATE [Concomitant]
     Dosage: 4 GRAM
     Route: 041
     Dates: start: 20110809, end: 20110809
  18. ERBITUX [Suspect]
     Dosage: 250 MILLIGRAM/SQ. METER
     Route: 065
     Dates: start: 20110705
  19. KLOR-CON [Concomitant]
     Dosage: 40 MILLIEQUIVALENTS
     Route: 048
     Dates: start: 20110822, end: 20110903
  20. FAMOTIDINE [Concomitant]
     Indication: PREMEDICATION
     Dosage: 20 MILLIGRAM
     Route: 041
     Dates: start: 20110627, end: 20110809
  21. ATIVAN [Concomitant]
     Indication: NAUSEA
     Dosage: .5 MILLIGRAM
     Route: 048
     Dates: start: 20110627, end: 20110903
  22. PROCHLORPERAZINE MALEATE [Concomitant]
     Indication: NAUSEA
     Dosage: 10 MILLIGRAM
     Route: 048
     Dates: start: 20110627, end: 20110903
  23. 0.9% NS [Concomitant]
     Dosage: 1000 MILLILITER
     Route: 041
     Dates: start: 20110808, end: 20110808
  24. ROCEPHIN [Concomitant]
     Indication: PNEUMONIA
     Dosage: 1 GRAM
     Route: 041
     Dates: start: 20110903
  25. CALCIUM GLUCONATE [Concomitant]
     Dosage: 3 GRAM
     Route: 041
     Dates: start: 20110907, end: 20110907
  26. FAMOTIDINE [Concomitant]
     Indication: PROPHYLAXIS
     Dosage: 20 MILLIGRAM
     Route: 041
     Dates: start: 20110904
  27. MAGNESIUM SULFATE [Concomitant]
     Dosage: 2 GRAM
     Route: 041
     Dates: start: 20110903, end: 20110903
  28. POTASSIUM PHOSPHATES [Concomitant]
     Dosage: 30MMOL
     Route: 041
     Dates: start: 20110905, end: 20110905
  29. ERBITUX [Suspect]
     Dosage: 400 MILLIGRAM/SQ. METER
     Route: 065
     Dates: start: 20110627, end: 20110809
  30. 0.9% NS [Concomitant]
     Indication: DEHYDRATION
     Dosage: 1000 MILLILITER
     Route: 041
     Dates: start: 20110801, end: 20110801
  31. ABRAXANE [Suspect]
     Dosage: 20 MILLIGRAM/SQ. METER
     Route: 041
     Dates: start: 20110705, end: 20110809
  32. MAGNESIUM OXIDE [Concomitant]
     Dosage: 400 MILLIGRAM
     Route: 048
     Dates: start: 20110808, end: 20110815
  33. SINGULAIR [Concomitant]
     Indication: SEASONAL ALLERGY
     Dosage: 10 MILLIGRAM
     Route: 048
  34. TRIPLE MIX (BENADRYL, MAALOX, LIDOCAINE) [Concomitant]
     Dosage: 1 TEASPOON
     Route: 048
     Dates: start: 20110718
  35. ZOFRAN [Concomitant]
     Indication: NAUSEA
     Dosage: 8 MILLIGRAM
     Route: 048
     Dates: start: 20110627, end: 20110903
  36. ZOFRAN [Concomitant]
     Indication: PREMEDICATION
     Dosage: 32 MILLIGRAM
     Route: 041
     Dates: start: 20110705, end: 20110809
  37. DEXAMETHASONE [Concomitant]
     Indication: PREMEDICATION
     Dosage: 10 MILLIGRAM
     Route: 041
     Dates: start: 20110627, end: 20110809
  38. MAGNESIUM SULFATE [Concomitant]
     Dosage: 2 GRAM
     Route: 041
     Dates: start: 20110815, end: 20110823

REACTIONS (6)
  - FEMORAL HERNIA, OBSTRUCTIVE [None]
  - FALL [None]
  - STOMATITIS [None]
  - TACHYCARDIA [None]
  - DERMATITIS ACNEIFORM [None]
  - DEHYDRATION [None]
